FAERS Safety Report 13785373 (Version 1)
Quarter: 2017Q3

REPORT INFORMATION
  Report Type: Spontaneous
  Country: US (occurrence: US)
  Receive Date: 20170724
  Receipt Date: 20170724
  Transmission Date: 20171127
  Serious: No
  Sender: FDA-Public Use
  Company Number: None

PATIENT
  Age: 85 Year
  Sex: Male

DRUGS (2)
  1. LISINOPRIL. [Concomitant]
     Active Substance: LISINOPRIL
  2. EVEROLIMUS [Suspect]
     Active Substance: EVEROLIMUS
     Indication: ADENOCARCINOMA
     Dosage: ?          OTHER DOSE:MG;?
     Route: 048
     Dates: start: 20170630, end: 20170720

REACTIONS (1)
  - Lip swelling [None]

NARRATIVE: CASE EVENT DATE: 20170720
